FAERS Safety Report 20524775 (Version 1)
Quarter: 2022Q1

REPORT INFORMATION
  Report Type: Spontaneous
  Country: US (occurrence: None)
  Receive Date: 20220225
  Receipt Date: 20220225
  Transmission Date: 20220424
  Serious: Yes (Hospitalization)
  Sender: FDA-Public Use
  Company Number: None

PATIENT
  Sex: Female
  Weight: 61.23 kg

DRUGS (6)
  1. PIQRAY [Suspect]
     Active Substance: ALPELISIB
     Indication: Breast cancer female
     Dosage: FREQUENCY : DAILY;?
     Route: 048
  2. ELIQUIS [Concomitant]
     Active Substance: APIXABAN
  3. ONDANSETRON [Concomitant]
     Active Substance: ONDANSETRON
  4. POTASSIUM [Concomitant]
     Active Substance: POTASSIUM
  5. TEMAZEPAM [Concomitant]
     Active Substance: TEMAZEPAM
  6. PIQRAY [Concomitant]
     Active Substance: ALPELISIB

REACTIONS (1)
  - Seizure [None]
